FAERS Safety Report 19854041 (Version 1)
Quarter: 2021Q3

REPORT INFORMATION
  Report Type: Spontaneous
  Country: US (occurrence: US)
  Receive Date: 20210920
  Receipt Date: 20210920
  Transmission Date: 20211014
  Serious: Yes (Other)
  Sender: FDA-Public Use
  Company Number: US-AUROBINDO-AUR-APL-2021-038857

PATIENT
  Age: 47 Year
  Sex: Male

DRUGS (24)
  1. OXYCODONE [Suspect]
     Active Substance: OXYCODONE
     Indication: INTERVERTEBRAL DISC DEGENERATION
  2. MITRAGYNA SPECIOSA [Suspect]
     Active Substance: HERBALS\MITRAGYNINE
     Indication: PRODUCT USED FOR UNKNOWN INDICATION
     Dosage: UNK (MIX TWO HEAPING TEASPOONS IN 16 OUNCES OF WATER AS DIRECTED ON THE LABEL)
     Route: 065
  3. MITRAGYNA SPECIOSA [Suspect]
     Active Substance: HERBALS\MITRAGYNINE
     Indication: BACK PAIN
     Dosage: UNK (THREE TO FOUR TIMES A DAY FOR MORE THAN HALF A YEAR)
     Route: 065
  4. HYDROXYZINE [Concomitant]
     Active Substance: HYDROXYZINE HYDROCHLORIDE
     Indication: DEPRESSION
  5. HYDROCODONE [Suspect]
     Active Substance: HYDROCODONE
     Indication: INTERVERTEBRAL DISC DEGENERATION
     Dosage: 10 MILLIGRAM, FOUR TIMES/DAY (TITRATED)
     Route: 065
  6. BUPRENORPHINE;NALOXONE [Concomitant]
     Active Substance: BUPRENORPHINE\NALOXONE
     Dosage: UNK (TITRATED UP TO TWO FILMS OF 8 MG/2 MG DAILY DURING SECOND MONTH)
     Route: 060
  7. HYDROCODONE BITARTRATE AND ACETAMINOPHEN [Suspect]
     Active Substance: ACETAMINOPHEN\HYDROCODONE BITARTRATE
     Indication: BACK PAIN
     Dosage: UNK (120 TABLETS PER MONTH)
     Route: 065
  8. BUPRENORPHINE;NALOXONE [Concomitant]
     Active Substance: BUPRENORPHINE\NALOXONE
     Dosage: 12 MILLIGRAM (TITRATION)
     Route: 065
  9. ESCITALOPRAM [Suspect]
     Active Substance: ESCITALOPRAM OXALATE
     Indication: ANXIETY
     Dosage: 20 MILLIGRAM, DAILY (FOR OVER A HALF A YEAR)
     Route: 065
  10. ESCITALOPRAM [Suspect]
     Active Substance: ESCITALOPRAM OXALATE
     Indication: DEPRESSION
  11. HYDROCODONE BITARTRATE AND ACETAMINOPHEN [Suspect]
     Active Substance: ACETAMINOPHEN\HYDROCODONE BITARTRATE
     Indication: INTERVERTEBRAL DISC DEGENERATION
  12. TRAMADOL. [Suspect]
     Active Substance: TRAMADOL
     Indication: INTERVERTEBRAL DISC DEGENERATION
  13. MITRAGYNA SPECIOSA [Suspect]
     Active Substance: HERBALS\MITRAGYNINE
     Dosage: UNK (2 HEAPING TEASPOONS EVERY 2 HOURS)
     Route: 065
  14. BUPRENORPHINE;NALOXONE [Concomitant]
     Active Substance: BUPRENORPHINE\NALOXONE
     Indication: PRODUCT USED FOR UNKNOWN INDICATION
     Dosage: UNK (ONE FILM OF 8 MG/2 MG ON ON DAYS ONE, TWO AND THREE)
     Route: 060
  15. DULOXETINE. [Concomitant]
     Active Substance: DULOXETINE
     Indication: DEPRESSION
  16. OXYCODONE [Suspect]
     Active Substance: OXYCODONE
     Indication: BACK PAIN
     Dosage: UNK
     Route: 065
  17. ALPRAZOLAM. [Suspect]
     Active Substance: ALPRAZOLAM
     Indication: ANXIETY
     Dosage: 0.25 MILLIGRAM, 3 TIMES A DAY (FOR 2 MONTHS)
     Route: 065
  18. ALPRAZOLAM. [Suspect]
     Active Substance: ALPRAZOLAM
     Indication: DEPRESSION
  19. TRAMADOL. [Suspect]
     Active Substance: TRAMADOL
     Indication: BACK PAIN
     Dosage: UNK
     Route: 065
  20. HYDROCODONE [Suspect]
     Active Substance: HYDROCODONE
     Indication: BACK PAIN
     Dosage: 5 MILLIGRAM, 3 TIMES A DAY
     Route: 065
  21. BUPRENORPHINE;NALOXONE [Concomitant]
     Active Substance: BUPRENORPHINE\NALOXONE
     Dosage: UNK (ON DAY FOUR HE WAS ESCALATED TO 1.5 FILMS)
     Route: 060
  22. BUPRENORPHINE;NALOXONE [Concomitant]
     Active Substance: BUPRENORPHINE\NALOXONE
     Dosage: UNK (MAINTAINED ON 1.5 BUPRENORPHINE?NALOXONE 8 MG/2 MG FILMS DAILY FOR ABOUT A MONTH)
     Route: 060
  23. DULOXETINE. [Concomitant]
     Active Substance: DULOXETINE
     Indication: ANXIETY
     Dosage: 60 MILLIGRAM, DAILY
     Route: 065
  24. HYDROXYZINE [Concomitant]
     Active Substance: HYDROXYZINE HYDROCHLORIDE
     Indication: ANXIETY
     Dosage: 25 MILLIGRAM, DAILY
     Route: 048

REACTIONS (5)
  - Intentional product misuse [Unknown]
  - Intentional overdose [Unknown]
  - Drug ineffective [Unknown]
  - Drug use disorder [Unknown]
  - Drug tolerance [Unknown]
